FAERS Safety Report 16888747 (Version 1)
Quarter: 2019Q4

REPORT INFORMATION
  Report Type: Spontaneous
  Country: JP (occurrence: JP)
  Receive Date: 20191007
  Receipt Date: 20191007
  Transmission Date: 20200122
  Serious: Yes (Other)
  Sender: FDA-Public Use
  Company Number: JP-LUPIN PHARMACEUTICALS INC.-2019-03983

PATIENT
  Age: 64 Year
  Sex: Male

DRUGS (3)
  1. PAZUFLOXACIN [Concomitant]
     Active Substance: PAZUFLOXACIN
     Indication: OSTEOMYELITIS
     Dosage: 2 GRAM, QD
     Route: 042
  2. METRONIDAZOLE. [Suspect]
     Active Substance: METRONIDAZOLE
     Indication: OSTEOMYELITIS
     Dosage: 1.5 GRAM, QD
     Route: 042
  3. METRONIDAZOLE. [Suspect]
     Active Substance: METRONIDAZOLE
     Dosage: 1.5 GRAM, QD
     Route: 048

REACTIONS (2)
  - Neuropathy peripheral [Recovered/Resolved]
  - Toxic encephalopathy [Recovered/Resolved]
